FAERS Safety Report 9855557 (Version 2)
Quarter: 2014Q2

REPORT INFORMATION
  Report Type: Spontaneous
  Country: US (occurrence: None)
  Receive Date: 20131223
  Receipt Date: 20131223
  Transmission Date: 20141212
  Serious: No
  Sender: FDA-Public Use
  Company Number: PHEH2013US016920

PATIENT
  Age: 34 Year
  Sex: Female
  Weight: 59.4 kg

DRUGS (3)
  1. GILENYA (FINGOLIMOD) CAPSULE, 0.5MG [Suspect]
     Indication: RELAPSING-REMITTING MULTIPLE SCLEROSIS
     Dosage: 0.5 MG, UNK, ORAL
     Route: 048
     Dates: start: 20130723, end: 20130822
  2. FLUTICASONE [Concomitant]
  3. VIT D (ERGOCALCIFEROL) [Concomitant]

REACTIONS (2)
  - Wheezing [None]
  - Rash [None]
